FAERS Safety Report 9558299 (Version 1)
Quarter: 2013Q3

REPORT INFORMATION
  Report Type: Report from Study
  Country: TR (occurrence: TR)
  Receive Date: 20130926
  Receipt Date: 20130926
  Transmission Date: 20140515
  Serious: Yes (Hospitalization)
  Sender: FDA-Public Use
  Company Number: TR-US-EMD SERONO, INC.-7238861

PATIENT
  Sex: Female
  Weight: 64 kg

DRUGS (8)
  1. REBIF [Suspect]
     Indication: MULTIPLE SCLEROSIS
     Route: 058
     Dates: start: 20120716
  2. FLUDEX /00340101/ [Suspect]
     Indication: HYPERTENSION
     Route: 048
  3. LEVOTIRON [Suspect]
     Indication: GOITRE
     Route: 048
  4. LIORESAL [Suspect]
     Indication: MUSCLE RELAXANT THERAPY
     Route: 048
  5. MINOSET [Suspect]
     Indication: ANALGESIC THERAPY
     Route: 048
     Dates: start: 20130716
  6. MINOSET [Suspect]
     Indication: ANTIPYRESIS
  7. CONIEL [Suspect]
     Indication: HYPERTENSION
     Route: 048
  8. FESOTERODINE [Suspect]
     Indication: URINARY INCONTINENCE
     Route: 048

REACTIONS (3)
  - Memory impairment [Unknown]
  - Asthenia [Unknown]
  - Anaemia [Recovered/Resolved]
